FAERS Safety Report 14450315 (Version 1)
Quarter: 2018Q1

REPORT INFORMATION
  Report Type: Spontaneous
  Country: FR (occurrence: FR)
  Receive Date: 20180129
  Receipt Date: 20180129
  Transmission Date: 20180509
  Serious: Yes (Other)
  Sender: FDA-Public Use
  Company Number: FR-MERCK KGAA-2040914

PATIENT
  Age: 64 Year
  Sex: Female

DRUGS (3)
  1. LEVOTHYROX NF [Suspect]
     Active Substance: LEVOTHYROXINE SODIUM
  2. LEVOTHYROX NF [Suspect]
     Active Substance: LEVOTHYROXINE SODIUM
  3. NOVOTHYROX [Suspect]
     Active Substance: LEVOTHYROXINE SODIUM
     Indication: PRODUCT USED FOR UNKNOWN INDICATION

REACTIONS (10)
  - Depression [None]
  - Myalgia [Not Recovered/Not Resolved]
  - Vertigo [None]
  - Arthralgia [None]
  - Hyperthyroidism [Not Recovered/Not Resolved]
  - Hypothyroidism [Not Recovered/Not Resolved]
  - Blood thyroid stimulating hormone increased [None]
  - Fatigue [Not Recovered/Not Resolved]
  - Feeling abnormal [Not Recovered/Not Resolved]
  - Crying [None]

NARRATIVE: CASE EVENT DATE: 201707
